FAERS Safety Report 17047688 (Version 1)
Quarter: 2019Q4

REPORT INFORMATION
  Report Type: Spontaneous
  Country: US (occurrence: US)
  Receive Date: 20191021
  Receipt Date: 20191021
  Transmission Date: 20200122
  Serious: No
  Sender: FDA-Public Use
  Company Number: None

PATIENT
  Age: 66 Year
  Sex: Female

DRUGS (1)
  1. REPATHA [Suspect]
     Active Substance: EVOLOCUMAB
     Route: 058
     Dates: start: 201909

REACTIONS (9)
  - Dizziness [None]
  - Abdominal pain upper [None]
  - Haematochezia [None]
  - Neck pain [None]
  - Vision blurred [None]
  - Fatigue [None]
  - Back pain [None]
  - Decreased appetite [None]
  - Urine abnormality [None]

NARRATIVE: CASE EVENT DATE: 20191021
